FAERS Safety Report 8235507-2 (Version None)
Quarter: 2012Q1

REPORT INFORMATION
  Report Type: 
  Country: None (occurrence: None)
  Receive Date: 20120322
  Receipt Date: 20120305
  Transmission Date: 20120608
  Serious: Yes (Life-Threatening)
  Sender: FDA-Public Use
  Company Number: FK201200765

PATIENT
  Age: 12 Year
  Sex: Male

DRUGS (1)
  1. OCTREOTIDE ACETATE [Suspect]
     Indication: PANCREATITIS CHRONIC
     Dosage: SEE IMAGE
     Route: 042

REACTIONS (5)
  - ANAPHYLACTIC REACTION [None]
  - UPPER AIRWAY OBSTRUCTION [None]
  - CONDITION AGGRAVATED [None]
  - ABDOMINAL PAIN [None]
  - PANCREATITIS [None]
